FAERS Safety Report 23864878 (Version 7)
Quarter: 2025Q1

REPORT INFORMATION
  Report Type: Report from Study
  Country: CA (occurrence: CA)
  Receive Date: 20240516
  Receipt Date: 20250325
  Transmission Date: 20250409
  Serious: Yes (Hospitalization)
  Sender: JOHNSON AND JOHNSON
  Company Number: CA-JNJFOC-20230957059

PATIENT
  Age: 80 Year
  Sex: Female
  Weight: 56 kg

DRUGS (6)
  1. STELARA [Suspect]
     Active Substance: USTEKINUMAB
     Indication: Colitis ulcerative
     Route: 058
     Dates: start: 20230920, end: 20240917
  2. STELARA [Suspect]
     Active Substance: USTEKINUMAB
     Route: 040
     Dates: start: 20230920
  3. STELARA [Suspect]
     Active Substance: USTEKINUMAB
     Route: 058
     Dates: start: 20231115
  4. STELARA [Suspect]
     Active Substance: USTEKINUMAB
     Route: 058
     Dates: start: 20240306
  5. STELARA [Suspect]
     Active Substance: USTEKINUMAB
     Route: 058
  6. COVID-19 VACCINE [Concomitant]

REACTIONS (10)
  - Colitis ulcerative [Recovering/Resolving]
  - Blood iron decreased [Unknown]
  - COVID-19 [Recovering/Resolving]
  - Drug level decreased [Unknown]
  - Device issue [Unknown]
  - Device defective [Unknown]
  - Accidental exposure to product [Unknown]
  - Inappropriate schedule of product administration [Unknown]
  - Off label use [Unknown]
  - Drug ineffective [Unknown]

NARRATIVE: CASE EVENT DATE: 20230921
